FAERS Safety Report 21148300 (Version 7)
Quarter: 2023Q2

REPORT INFORMATION
  Report Type: Spontaneous
  Country: US (occurrence: US)
  Receive Date: 20220729
  Receipt Date: 20230613
  Transmission Date: 20230721
  Serious: No
  Sender: FDA-Public Use
  Company Number: US-BRISTOL-MYERS SQUIBB COMPANY-2022-082372

PATIENT
  Age: 70 Year
  Sex: Female

DRUGS (6)
  1. REVLIMID [Suspect]
     Active Substance: LENALIDOMIDE
     Indication: Plasma cell myeloma
     Dosage: TAKE ONE CAPSULE BY MOUTH DAILY
     Route: 048
     Dates: start: 20210202
  2. REVLIMID [Suspect]
     Active Substance: LENALIDOMIDE
     Indication: Plasma cell myeloma in remission
     Dosage: FREQUENCY: ON DAYS 1-28
     Route: 048
     Dates: start: 20230318
  3. REVLIMID [Suspect]
     Active Substance: LENALIDOMIDE
     Route: 048
     Dates: start: 20230318
  4. DEXAMETHASONE [Concomitant]
     Active Substance: DEXAMETHASONE
     Indication: Product used for unknown indication
  5. CORICIDIN CAP CONG/CGH [Concomitant]
     Indication: Product used for unknown indication
     Dosage: CONG/CGH
  6. IMODIUM A-D TAB 2MG [Concomitant]
     Indication: Product used for unknown indication

REACTIONS (8)
  - Diarrhoea [Unknown]
  - Muscle spasms [Unknown]
  - Skin discolouration [Unknown]
  - Dyspepsia [Unknown]
  - Peripheral swelling [Unknown]
  - Fatigue [Unknown]
  - Macule [Unknown]
  - Cough [Unknown]

NARRATIVE: CASE EVENT DATE: 20221003
